FAERS Safety Report 8114199-7 (Version None)
Quarter: 2012Q1

REPORT INFORMATION
  Report Type: 
  Country: None (occurrence: None)
  Receive Date: 20120205
  Receipt Date: 20110531
  Transmission Date: 20120608
  Serious: No
  Sender: FDA-Public Use
  Company Number: US-ALLERGAN-1107399US

PATIENT
  Age: 65 Year
  Sex: Female

DRUGS (2)
  1. NEVANAC [Concomitant]
     Indication: CATARACT OPERATION
     Dosage: 1 GTT, TID
     Route: 047
     Dates: start: 20110507, end: 20110530
  2. PRED FORTE [Suspect]
     Indication: CATARACT OPERATION
     Dosage: 1 DROP INSTILLED THREE TIMES A DAY TO THE LEFT EYE
     Route: 047
     Dates: start: 20110510

REACTIONS (5)
  - PHARYNGEAL OEDEMA [None]
  - DYSPHAGIA [None]
  - EYE IRRITATION [None]
  - DYSPNOEA [None]
  - THROAT TIGHTNESS [None]
